FAERS Safety Report 11931240 (Version 1)
Quarter: 2016Q1

REPORT INFORMATION
  Report Type: Spontaneous
  Country: US (occurrence: US)
  Receive Date: 20160120
  Receipt Date: 20160120
  Transmission Date: 20160526
  Serious: No
  Sender: FDA-Public Use
  Company Number: US-INCYTE CORPORATION-2015IN004878

PATIENT
  Sex: Female
  Weight: 64 kg

DRUGS (13)
  1. BENADRYL [Concomitant]
     Active Substance: DIPHENHYDRAMINE HYDROCHLORIDE
  2. HYDROXYUREA. [Concomitant]
     Active Substance: HYDROXYUREA
  3. BIOTIN [Concomitant]
     Active Substance: BIOTIN
  4. MULTIVITAMIN                       /00097801/ [Concomitant]
     Active Substance: VITAMINS
  5. JAKAFI [Suspect]
     Active Substance: RUXOLITINIB
     Indication: POLYCYTHAEMIA VERA
     Dosage: 10 MG, BID
     Route: 048
     Dates: start: 20150917
  6. ADVIL [Concomitant]
     Active Substance: IBUPROFEN
  7. ALLOPURINOL. [Concomitant]
     Active Substance: ALLOPURINOL
  8. KEFLEX [Concomitant]
     Active Substance: CEPHALEXIN
  9. HYDROCHLOROTHIAZIDE. [Concomitant]
     Active Substance: HYDROCHLOROTHIAZIDE
  10. HYDROCODONE [Concomitant]
     Active Substance: HYDROCODONE
  11. NORVASC [Concomitant]
     Active Substance: AMLODIPINE BESYLATE
  12. ASPIRIN. [Concomitant]
     Active Substance: ASPIRIN
  13. VITAMIN D3 [Concomitant]
     Active Substance: CHOLECALCIFEROL

REACTIONS (1)
  - Wound complication [Unknown]
